FAERS Safety Report 6696065-7 (Version None)
Quarter: 2010Q2

REPORT INFORMATION
  Report Type: 
  Country: None (occurrence: None)
  Receive Date: 20100426
  Receipt Date: 20100416
  Transmission Date: 20101027
  Serious: Yes (Hospitalization)
  Sender: FDA-Public Use
  Company Number: PHHO2010SE05152

PATIENT
  Sex: Male
  Weight: 86 kg

DRUGS (1)
  1. ALISKIREN ALI+TAB [Suspect]
     Indication: ACUTE MYOCARDIAL INFARCTION
     Dosage: 300 MG
     Route: 048
     Dates: start: 20090703

REACTIONS (1)
  - NON-CARDIAC CHEST PAIN [None]
